FAERS Safety Report 9433620 (Version 1)
Quarter: 2013Q3

REPORT INFORMATION
  Report Type: Spontaneous
  Country: US (occurrence: US)
  Receive Date: 20130731
  Receipt Date: 20130731
  Transmission Date: 20140515
  Serious: Yes (Other)
  Sender: FDA-Public Use
  Company Number: US-NICOBRDEVP-2013-06610

PATIENT
  Age: 51 Year
  Sex: Male

DRUGS (5)
  1. CIPROFLOXACIN HYDROCHLORIDE (WATSON LABORATORIES) [Suspect]
     Indication: PROSTATIC DISORDER
     Dosage: ONE TABLET BID
     Route: 048
  2. NEURONTIN [Concomitant]
     Indication: PRODUCT USED FOR UNKNOWN INDICATION
     Dosage: UNKNOWN
     Route: 065
  3. CELEBREX [Concomitant]
     Indication: PRODUCT USED FOR UNKNOWN INDICATION
     Dosage: UNKNOWN
     Route: 065
  4. DARVOCET                           /00220901/ [Concomitant]
     Indication: PRODUCT USED FOR UNKNOWN INDICATION
     Dosage: UNKNOWN
     Route: 065
  5. PREDNISONE [Concomitant]
     Indication: PRODUCT USED FOR UNKNOWN INDICATION
     Dosage: UNKNOWN
     Route: 065

REACTIONS (6)
  - Tendon injury [Unknown]
  - Weight bearing difficulty [Unknown]
  - Weight increased [Unknown]
  - Blood pressure increased [Unknown]
  - Heart rate increased [Unknown]
  - Tendon pain [Unknown]
